FAERS Safety Report 6234556-3 (Version None)
Quarter: 2009Q2

REPORT INFORMATION
  Report Type: 
  Country: None (occurrence: None)
  Receive Date: 20090616
  Receipt Date: 20090616
  Transmission Date: 20091009
  Serious: Yes (Hospitalization)
  Sender: FDA-Public Use
  Company Number: None

PATIENT
  Sex: Male
  Weight: 102.7 kg

DRUGS (8)
  1. DOCETAXEL [Suspect]
     Indication: PROSTATE CANCER
     Dosage: 75MG/M2, Q3W, IV (041)
     Route: 042
     Dates: start: 20090521
  2. FLOMAX [Concomitant]
  3. ACIPHEX [Concomitant]
  4. OXYCODONE HCL [Concomitant]
  5. DEXAMETHASONE [Concomitant]
  6. LUPRON [Concomitant]
  7. CALCIUM [Concomitant]
  8. DIOVAN [Concomitant]

REACTIONS (4)
  - ACUTE CORONARY SYNDROME [None]
  - DRUG HYPERSENSITIVITY [None]
  - INFUSION RELATED REACTION [None]
  - MICTURITION URGENCY [None]
